FAERS Safety Report 12090863 (Version 5)
Quarter: 2016Q2

REPORT INFORMATION
  Report Type: Report from Study
  Country: US (occurrence: US)
  Receive Date: 20160218
  Receipt Date: 20160407
  Transmission Date: 20160815
  Serious: Yes (Other)
  Sender: FDA-Public Use
  Company Number: PHEH2016US003843

PATIENT
  Age: 45 Year
  Sex: Female
  Weight: 51.7 kg

DRUGS (1)
  1. GILENYA [Suspect]
     Active Substance: FINGOLIMOD HYDROCHLORIDE
     Indication: MULTIPLE SCLEROSIS
     Dosage: 0.5 MG, QD
     Route: 048
     Dates: start: 20160214

REACTIONS (18)
  - Blindness transient [Recovered/Resolved]
  - Gaze palsy [Unknown]
  - Speech disorder [Unknown]
  - Pain in extremity [Unknown]
  - Muscular weakness [Unknown]
  - Headache [Unknown]
  - Back pain [Unknown]
  - Feeling hot [Unknown]
  - Tremor [Unknown]
  - Thirst [Unknown]
  - Balance disorder [Unknown]
  - Heart rate decreased [Unknown]
  - Oculogyric crisis [Unknown]
  - Tunnel vision [Recovered/Resolved]
  - Pain [Unknown]
  - Hypokinesia [Unknown]
  - Dyspnoea [Recovered/Resolved]
  - Fatigue [Unknown]

NARRATIVE: CASE EVENT DATE: 20160214
